FAERS Safety Report 6689382-8 (Version None)
Quarter: 2010Q2

REPORT INFORMATION
  Report Type: 
  Country: None (occurrence: None)
  Receive Date: 20100419
  Receipt Date: 20100419
  Transmission Date: 20101027
  Serious: Yes (Hospitalization)
  Sender: FDA-Public Use
  Company Number: None

PATIENT
  Sex: Male
  Weight: 101 kg

DRUGS (3)
  1. CISPLATIN [Suspect]
     Dosage: 173 MG
     Dates: end: 20100201
  2. TAXOTERE [Suspect]
     Dosage: 173 MG
     Dates: end: 20100201
  3. NONE CONTRIBUTING AT THIS TIME, [Concomitant]

REACTIONS (11)
  - ABDOMINAL PAIN UPPER [None]
  - ASTHENIA [None]
  - BACTERIAL INFECTION [None]
  - BODY TEMPERATURE INCREASED [None]
  - COLITIS [None]
  - CULTURE POSITIVE [None]
  - DIVERTICULAR PERFORATION [None]
  - FAILURE TO THRIVE [None]
  - FEELING COLD [None]
  - NAUSEA [None]
  - NEUTROPHIL COUNT DECREASED [None]
